FAERS Safety Report 21676254 (Version 1)
Quarter: 2022Q4

REPORT INFORMATION
  Report Type: Report from Study
  Country: CN (occurrence: CN)
  Receive Date: 20221202
  Receipt Date: 20221202
  Transmission Date: 20230112
  Serious: Yes (Hospitalization)
  Sender: FDA-Public Use
  Company Number: CN-BRISTOL-MYERS SQUIBB COMPANY-2022-101178

PATIENT
  Age: 42 Year
  Sex: Male
  Weight: 81 kg

DRUGS (3)
  1. METFORMIN SUSTAINED-RELEASE TABLETS [Concomitant]
     Indication: Diabetes mellitus
     Dosage: DOSE: 1 TABLET; FREQUENCY: BID (BD; TWICE PER DAY).
     Route: 048
     Dates: start: 20210918
  2. INSULIN GLARGINE [Concomitant]
     Active Substance: INSULIN GLARGINE
     Indication: Diabetes mellitus
     Dosage: FREQUENCY: OTHER QN
     Route: 058
     Dates: start: 20210918
  3. GLICLAZIDE [Concomitant]
     Active Substance: GLICLAZIDE
     Indication: Diabetes mellitus
     Dosage: 1 TABLET,DAILY
     Route: 048
     Dates: start: 20200413

REACTIONS (1)
  - Intervertebral disc protrusion [Recovered/Resolved]

NARRATIVE: CASE EVENT DATE: 20220708
